FAERS Safety Report 24384345 (Version 1)
Quarter: 2024Q3

REPORT INFORMATION
  Report Type: Spontaneous
  Country: US (occurrence: None)
  Receive Date: 20240930
  Receipt Date: 20240930
  Transmission Date: 20241017
  Serious: Yes (Other)
  Sender: Public
  Company Number: None

PATIENT
  Age: 28 Year
  Sex: Female
  Weight: 80.1 kg

DRUGS (6)
  1. TIOCONAZOLE 1 [Suspect]
     Active Substance: TIOCONAZOLE
     Indication: Fungal infection
     Dosage: OTHER QUANTITY : 1 SUPPOSITORY(IES);?OTHER FREQUENCY : 1 TIME;?
     Route: 067
     Dates: start: 20240930, end: 20240930
  2. LEXAPRO [Concomitant]
     Active Substance: ESCITALOPRAM OXALATE
  3. UNSPECIFIED INGREDIENT [Concomitant]
     Active Substance: UNSPECIFIED INGREDIENT
  4. CLARITIN [Concomitant]
     Active Substance: LORATADINE
  5. intermittent cranberry concentrate [Concomitant]
  6. fiber/daily vitamin gummy [Concomitant]

REACTIONS (1)
  - Vulvovaginal burning sensation [None]

NARRATIVE: CASE EVENT DATE: 20240930
